FAERS Safety Report 21867417 (Version 2)
Quarter: 2023Q1

REPORT INFORMATION
  Report Type: Spontaneous
  Country: US (occurrence: US)
  Receive Date: 20230116
  Receipt Date: 20230120
  Transmission Date: 20230418
  Serious: Yes (Hospitalization, Other)
  Sender: FDA-Public Use
  Company Number: US-JUBILANT CADISTA PHARMACEUTICALS-2023JUB00013

PATIENT
  Age: 23 Year
  Sex: Female
  Weight: 62 kg

DRUGS (5)
  1. PREDNISONE [Suspect]
     Active Substance: PREDNISONE
     Indication: Immunosuppressant drug therapy
     Dosage: 5 MG EVERY 1 DAY
  2. MYCOPHENOLATE SODIUM [Suspect]
     Active Substance: MYCOPHENOLATE SODIUM
     Indication: Immunosuppressant drug therapy
     Dosage: 180 MG, EVERY 12 HOUR
     Dates: end: 202102
  3. TACROLIMUS [Suspect]
     Active Substance: TACROLIMUS
     Indication: Immunosuppressant drug therapy
     Dosage: FIVE YEARS PRIOR, TARGET LEVEL OF TACROLIMUS WAS INCREASED
  4. TACROLIMUS [Suspect]
     Active Substance: TACROLIMUS
     Dosage: AT THE TIME OF THE INDEX CLINIC, TARGET GOAL OF 4 TO 6 MG/DL
  5. TACROLIMUS [Suspect]
     Active Substance: TACROLIMUS
     Dosage: 1 MG, EVERY 12 HOUR

REACTIONS (1)
  - Post transplant lymphoproliferative disorder [Recovered/Resolved]

NARRATIVE: CASE EVENT DATE: 20210601
